FAERS Safety Report 17666958 (Version 2)
Quarter: 2020Q3

REPORT INFORMATION
  Report Type: Spontaneous
  Country: US (occurrence: US)
  Receive Date: 20200414
  Receipt Date: 20200807
  Transmission Date: 20201102
  Serious: Yes (Death, Other)
  Sender: FDA-Public Use
  Company Number: US-PURDUE-USA-2020-0151686

PATIENT
  Age: 36 Year
  Sex: Male

DRUGS (2)
  1. OXYCONTIN [Suspect]
     Active Substance: OXYCODONE HYDROCHLORIDE
     Indication: SURGERY
     Route: 048
  2. FENTANYL. [Suspect]
     Active Substance: FENTANYL
     Indication: SURGERY
     Route: 065

REACTIONS (5)
  - Overdose [Fatal]
  - Knee operation [Unknown]
  - Personality change [Unknown]
  - Foot operation [Unknown]
  - Drug dependence [Unknown]

NARRATIVE: CASE EVENT DATE: 20180312
